FAERS Safety Report 19894080 (Version 1)
Quarter: 2021Q3

REPORT INFORMATION
  Report Type: Report from Study
  Country: IN (occurrence: IN)
  Receive Date: 20210928
  Receipt Date: 20210928
  Transmission Date: 20211014
  Serious: Yes (Hospitalization, Other)
  Sender: FDA-Public Use
  Company Number: IN-INCYTE CORPORATION-2020IN007456

PATIENT

DRUGS (3)
  1. JAKAVI [Suspect]
     Active Substance: RUXOLITINIB
     Dosage: 20 MG (20 MG IN THE MORNING AND HALF TABLETOF 20 MG IN THE EVENING)
     Route: 065
     Dates: start: 20210227
  2. JAKAVI [Suspect]
     Active Substance: RUXOLITINIB
     Dosage: 5 MG, BID
     Route: 065
  3. JAKAVI [Suspect]
     Active Substance: RUXOLITINIB
     Indication: PRIMARY MYELOFIBROSIS
     Dosage: 20 MG, BID (20MG IN THE MORN, HALF TAB OF 20MG IN EVE)
     Route: 048
     Dates: start: 20200625, end: 20210226

REACTIONS (9)
  - Anaemia [Recovering/Resolving]
  - Hypoxia [Not Recovered/Not Resolved]
  - Gait inability [Not Recovered/Not Resolved]
  - Inappropriate schedule of product administration [Unknown]
  - Platelet count decreased [Not Recovered/Not Resolved]
  - Fatigue [Not Recovered/Not Resolved]
  - Urinary tract infection [Not Recovered/Not Resolved]
  - Wrong technique in product usage process [Not Recovered/Not Resolved]
  - Blood count abnormal [Unknown]

NARRATIVE: CASE EVENT DATE: 20210227
